FAERS Safety Report 6941538-2 (Version None)
Quarter: 2010Q3

REPORT INFORMATION
  Report Type: 
  Country: None (occurrence: None)
  Receive Date: 20100825
  Receipt Date: 20100818
  Transmission Date: 20110219
  Serious: Yes (Hospitalization)
  Sender: FDA-Public Use
  Company Number: US-US-EMD SERONO, INC.-7014878

PATIENT
  Sex: Female

DRUGS (5)
  1. REBIF [Suspect]
     Indication: PRODUCT USED FOR UNKNOWN INDICATION
     Route: 058
     Dates: end: 20081001
  2. LEVAQUIN [Suspect]
     Indication: SINUSITIS
  3. AMPYRA [Concomitant]
     Dates: start: 20100801
  4. TRILEPTAL [Concomitant]
  5. NEURONTIN [Concomitant]
     Dates: end: 20100101

REACTIONS (5)
  - ANAPHYLACTIC SHOCK [None]
  - DEPRESSION [None]
  - HYSTERECTOMY [None]
  - SINUSITIS [None]
  - STEVENS-JOHNSON SYNDROME [None]
